FAERS Safety Report 5245081-0 (Version None)
Quarter: 2007Q1

REPORT INFORMATION
  Report Type: 
  Country: None (occurrence: None)
  Receive Date: 20070223
  Receipt Date: 20070219
  Transmission Date: 20070707
  Serious: Yes (Life-Threatening)
  Sender: FDA-Public Use
  Company Number: PHRM2007FR00844

PATIENT
  Age: 35 Year
  Sex: Female

DRUGS (1)
  1. METHERGINE [Suspect]
     Indication: POST ABORTION HAEMORRHAGE
     Dosage: 15 DRP, TID
     Route: 048
     Dates: start: 20070112, end: 20070112

REACTIONS (4)
  - HYPERTENSION [None]
  - MALAISE [None]
  - PARAESTHESIA [None]
  - TACHYCARDIA [None]
